FAERS Safety Report 19926071 (Version 17)
Quarter: 2023Q2

REPORT INFORMATION
  Report Type: Report from Study
  Country: US (occurrence: US)
  Receive Date: 20211006
  Receipt Date: 20230412
  Transmission Date: 20230721
  Serious: Yes (Other)
  Sender: FDA-Public Use
  Company Number: US-TAKEDA-2021TUS061225

PATIENT
  Age: 64 Year
  Sex: Male

DRUGS (3)
  1. HEMOFIL [Suspect]
     Active Substance: ANTIHEMOPHILIC FACTOR HUMAN
     Indication: Haemorrhage
     Dosage: 1840 INTERNATIONAL UNIT
     Route: 042
  2. HEMOFIL [Suspect]
     Active Substance: ANTIHEMOPHILIC FACTOR HUMAN
     Dosage: 2000 INTERNATIONAL UNIT, QD
     Route: 042
  3. HEMOFIL [Suspect]
     Active Substance: ANTIHEMOPHILIC FACTOR HUMAN
     Dosage: 2000 INTERNATIONAL UNIT
     Route: 042

REACTIONS (18)
  - Vein rupture [Unknown]
  - Cataract [Unknown]
  - Haemarthrosis [Recovered/Resolved]
  - Contusion [Unknown]
  - Skin abrasion [Unknown]
  - Fall [Unknown]
  - Dehydration [Unknown]
  - Dry skin [Unknown]
  - Infusion site extravasation [Unknown]
  - Vitamin D decreased [Unknown]
  - Joint injury [Recovered/Resolved]
  - Arthralgia [Unknown]
  - Asthenia [Unknown]
  - General physical health deterioration [Unknown]
  - Pain [Unknown]
  - Swelling [Unknown]
  - Tachycardia [Unknown]
  - Joint swelling [Unknown]

NARRATIVE: CASE EVENT DATE: 20220211
